FAERS Safety Report 24166674 (Version 2)
Quarter: 2024Q4

REPORT INFORMATION
  Report Type: Spontaneous
  Country: US (occurrence: US)
  Receive Date: 20240802
  Receipt Date: 20241016
  Transmission Date: 20250114
  Serious: No
  Sender: VIIV
  Company Number: US-ViiV Healthcare Limited-114100

PATIENT

DRUGS (3)
  1. CABOTEGRAVIR [Suspect]
     Active Substance: CABOTEGRAVIR
     Indication: Product used for unknown indication
     Dosage: UNK, 600 MG
  2. CABOTEGRAVIR [Suspect]
     Active Substance: CABOTEGRAVIR
  3. CABOTEGRAVIR [Suspect]
     Active Substance: CABOTEGRAVIR

REACTIONS (3)
  - Wrong technique in device usage process [Unknown]
  - Intercepted product preparation error [Unknown]
  - Product complaint [Unknown]
